FAERS Safety Report 25870307 (Version 1)
Quarter: 2025Q4

REPORT INFORMATION
  Report Type: Spontaneous
  Country: US (occurrence: US)
  Receive Date: 20251001
  Receipt Date: 20251001
  Transmission Date: 20260118
  Serious: Yes (Other)
  Sender: PFIZER
  Company Number: US-PFIZER INC-202500190396

PATIENT
  Age: 38 Year
  Sex: Female
  Weight: 145 kg

DRUGS (1)
  1. BUPIVACAINE HYDROCHLORIDE [Suspect]
     Active Substance: BUPIVACAINE HYDROCHLORIDE
     Indication: Spinal anaesthesia
     Dosage: 12 MG
     Route: 037
     Dates: start: 20250923

REACTIONS (1)
  - Therapeutic product effect incomplete [Unknown]
